FAERS Safety Report 9355819 (Version 1)
Quarter: 2013Q2

REPORT INFORMATION
  Report Type: Spontaneous
  Country: US (occurrence: US)
  Receive Date: 20130619
  Receipt Date: 20130619
  Transmission Date: 20140414
  Serious: Yes (Other)
  Sender: FDA-Public Use
  Company Number: CHPA2013US009930

PATIENT
  Age: 75 Year
  Sex: Female

DRUGS (2)
  1. EXCEDRIN EXTRA STRENGTH [Suspect]
     Indication: HEADACHE
     Dosage: UNK, UNK
     Route: 048
  2. BUFFERIN//ACETYLSALICYLIC ACID [Suspect]
     Indication: HEADACHE
     Dosage: UNK, UNK
     Route: 048

REACTIONS (1)
  - Duodenal ulcer [Not Recovered/Not Resolved]
